FAERS Safety Report 9234016 (Version 1)
Quarter: 2013Q2

REPORT INFORMATION
  Report Type: Spontaneous
  Country: FR (occurrence: FR)
  Receive Date: 20130416
  Receipt Date: 20130416
  Transmission Date: 20140414
  Serious: Yes (Death)
  Sender: FDA-Public Use
  Company Number: FR-SANOFI-AVENTIS-2013SA037055

PATIENT
  Age: 53 Year
  Sex: Female

DRUGS (7)
  1. TAXOTERE [Suspect]
     Indication: BREAST CANCER
     Route: 042
     Dates: start: 20130116, end: 20130206
  2. PACLITAXEL [Suspect]
     Indication: BREAST CANCER
     Route: 042
     Dates: start: 20130227, end: 20130313
  3. DOXORUBICIN HYDROCHLORIDE [Suspect]
     Indication: BREAST CANCER
     Route: 042
     Dates: start: 20121024, end: 20121226
  4. ENDOXAN [Suspect]
     Indication: BREAST CANCER
     Route: 042
     Dates: start: 20121024, end: 20121226
  5. LEVOTHYROX [Concomitant]
     Indication: HYPOTHYROIDISM
     Route: 048
  6. GLUCOPHAGE [Concomitant]
     Indication: TYPE 2 DIABETES MELLITUS
     Route: 048
  7. CRESTOR [Concomitant]
     Indication: DYSLIPIDAEMIA
     Route: 048

REACTIONS (6)
  - Cardiogenic shock [Fatal]
  - Palpitations [Fatal]
  - Hypotension [Fatal]
  - Supraventricular tachycardia [Fatal]
  - Cardiovascular insufficiency [Fatal]
  - Dilatation ventricular [Fatal]
